FAERS Safety Report 6156016-0 (Version None)
Quarter: 2009Q2

REPORT INFORMATION
  Report Type: 
  Country: None (occurrence: None)
  Receive Date: 20090413
  Receipt Date: 20090413
  Transmission Date: 20091009
  Serious: Yes (Hospitalization, Other)
  Sender: FDA-Public Use
  Company Number: None

PATIENT
  Age: 25 Year
  Sex: Female
  Weight: 53.978 kg

DRUGS (2)
  1. ASACOL [Suspect]
     Indication: COLITIS ULCERATIVE
     Dosage: 14 PILLS A DAY PO
     Route: 048
     Dates: start: 20080529, end: 20080616
  2. LIALDA [Suspect]
     Indication: COLITIS ULCERATIVE
     Dosage: 4 PILLS A DAY PO
     Route: 048
     Dates: start: 20080526, end: 20080528

REACTIONS (12)
  - APPARENT DEATH [None]
  - CHEST DISCOMFORT [None]
  - CHROMATURIA [None]
  - DRUG HYPERSENSITIVITY [None]
  - DYSPNOEA [None]
  - FLUID RETENTION [None]
  - HAEMORRHAGE [None]
  - OEDEMA [None]
  - PERICARDIAL EFFUSION [None]
  - PERICARDITIS [None]
  - THROAT TIGHTNESS [None]
  - WEIGHT DECREASED [None]
